FAERS Safety Report 9759442 (Version 1)
Quarter: 2013Q4

REPORT INFORMATION
  Report Type: Spontaneous
  Country: US (occurrence: US)
  Receive Date: 20131216
  Receipt Date: 20131216
  Transmission Date: 20140711
  Serious: No
  Sender: FDA-Public Use
  Company Number: US-VERTEX PHARMACEUTICALS INC-2013-011662

PATIENT
  Age: 14 Year
  Sex: Male

DRUGS (6)
  1. KALYDECO [Suspect]
     Indication: CYSTIC FIBROSIS
     Dosage: 150 MG, BID
     Route: 048
  2. PROAIR HFA [Concomitant]
  3. CREON [Concomitant]
     Dosage: 12000 DF, UNK
  4. VITAMIN D3 [Concomitant]
     Dosage: 10000 DF, UNK
  5. ALBUTEROL [Concomitant]
     Dosage: 0.083 %, UNK
  6. SODIUM CHLORIDE [Concomitant]
     Dosage: 0.45 %, UNK

REACTIONS (2)
  - Nasopharyngitis [Unknown]
  - Nasal congestion [Unknown]
